FAERS Safety Report 4454323-0 (Version None)
Quarter: 2004Q3

REPORT INFORMATION
  Report Type: 
  Country: None (occurrence: None)
  Receive Date: 20040916
  Receipt Date: 20040901
  Transmission Date: 20050211
  Serious: Yes (Other)
  Sender: FDA-Public Use
  Company Number: A0522494A

PATIENT
  Age: 71 Year
  Sex: Male

DRUGS (2)
  1. COMMIT [Suspect]
     Indication: EX-SMOKER
     Dosage: 4 MG/THREE TIMES PER DAY/TRANS
     Dates: start: 20040816, end: 20040816
  2. PAIN MEDICATION [Concomitant]

REACTIONS (4)
  - CARDIAC DISORDER [None]
  - CHEST PAIN [None]
  - PAIN IN EXTREMITY [None]
  - PALLOR [None]
